FAERS Safety Report 8926561 (Version 1)
Quarter: 2012Q4

REPORT INFORMATION
  Report Type: 
  Country: US (occurrence: US)
  Receive Date: 20121127
  Receipt Date: 20121127
  Transmission Date: 20130627
  Serious: No
  Sender: FDA-Public Use
  Company Number: US-BAYER-2012-123965

PATIENT
  Age: 70 Year
  Sex: Female
  Weight: 49 kg

DRUGS (3)
  1. ALEVE CAPLET/TABLET,MIDOL EXTENDED RELIEF CAPLET [Suspect]
     Indication: BACK ACHE
     Dosage: 2 DF, BID
     Route: 048
     Dates: start: 201205, end: 201210
  2. ADVIL [Concomitant]
  3. MELOXICAM [Concomitant]

REACTIONS (2)
  - Drug ineffective [None]
  - Overdose [None]
